FAERS Safety Report 20310262 (Version 6)
Quarter: 2022Q2

REPORT INFORMATION
  Report Type: Spontaneous
  Country: US (occurrence: US)
  Receive Date: 20220107
  Receipt Date: 20220419
  Transmission Date: 20220721
  Serious: Yes (Hospitalization, Other)
  Sender: FDA-Public Use
  Company Number: US-PFIZER INC-202101118139

PATIENT
  Age: 78 Year
  Sex: Male
  Weight: 57.6 kg

DRUGS (17)
  1. VYNDAMAX [Suspect]
     Active Substance: TAFAMIDIS
     Indication: Amyloidosis
     Dosage: 61 MG. ONE CAPSULE DAILY BY MOUTH
     Route: 048
     Dates: start: 2019
  2. ELIQUIS [Suspect]
     Active Substance: APIXABAN
     Indication: Cerebrovascular accident prophylaxis
     Dosage: 5 MILLIGRAM, Q12H
     Route: 065
  3. ELIQUIS [Suspect]
     Active Substance: APIXABAN
     Dosage: 2.5 MILLIGRAM, Q12H
     Route: 048
  4. PREDNISONE [Concomitant]
     Active Substance: PREDNISONE
     Indication: Gout
     Dosage: 2.5 MG, ONCE A DAY
     Route: 048
  5. FEBUXOSTAT [Concomitant]
     Active Substance: FEBUXOSTAT
     Indication: Gout
     Dosage: 40 MG, ONCE A DAY
     Route: 048
  6. ALPHA LIPOIC ACID [Concomitant]
     Active Substance: .ALPHA.-LIPOIC ACID
     Dosage: 600 MG, 1X/DAY
     Route: 065
  7. CARBIDOPA AND LEVODOPA [Concomitant]
     Active Substance: CARBIDOPA\LEVODOPA
     Dosage: CARBIDOPA 25MG; LEVODOPA 100MG TABLET1 AND HALF TABLET FOUR TIMES A DAY
     Route: 048
  8. DONEPEZIL [Concomitant]
     Active Substance: DONEPEZIL
     Dosage: 10 MG, 1X/DAY
     Route: 048
  9. FINASTERIDE [Concomitant]
     Active Substance: FINASTERIDE
     Dosage: 5 MG, 1X/DAY
     Route: 048
  10. FISH OIL [Concomitant]
     Active Substance: FISH OIL
     Dosage: 1200 MG, 1X/DAY
     Route: 065
  11. IRON [Concomitant]
     Active Substance: IRON
     Dosage: 65 MG, 1X/DAY
     Route: 048
  12. LUTEIN [Concomitant]
     Active Substance: LUTEIN
     Dosage: 5 MG
     Route: 065
  13. MELATONIN [Concomitant]
     Active Substance: MELATONIN
     Dosage: 10 MG BY MOUTH AT NIEGHT
     Route: 048
  14. VITAMINS [Concomitant]
     Active Substance: VITAMINS
     Dosage: UNK
     Route: 065
  15. TORSEMIDE [Concomitant]
     Active Substance: TORSEMIDE
     Dosage: ONE TABLET BY MOUTH PRN
     Route: 048
  16. NARCAN [Concomitant]
     Active Substance: NALOXONE HYDROCHLORIDE
     Dosage: 4MG/ 0.1 ML NASAL SPRAY ONE TIME ONLY MAY REPEAT TILL PATIENT RESPOND
     Route: 045
  17. ACETAMINOPHEN\OXYCODONE HYDROCHLORIDE [Concomitant]
     Active Substance: ACETAMINOPHEN\OXYCODONE HYDROCHLORIDE
     Dosage: 10MG-325MG ORAL TABLET FOR EVERY 6 MONTHS AS NEED FOR PAIN
     Route: 048

REACTIONS (9)
  - Gout [Recovered/Resolved with Sequelae]
  - Gouty arthritis [Recovered/Resolved with Sequelae]
  - Peripheral swelling [Unknown]
  - Neuropathy peripheral [Not Recovered/Not Resolved]
  - Congestive cardiomyopathy [Unknown]
  - Oedema peripheral [Unknown]
  - Dyspnoea [Unknown]
  - Blood chloride decreased [Unknown]
  - Blood glucose increased [Unknown]

NARRATIVE: CASE EVENT DATE: 20211105
